FAERS Safety Report 7677828-8 (Version None)
Quarter: 2011Q3

REPORT INFORMATION
  Report Type: 
  Country: None (occurrence: None)
  Receive Date: 20110808
  Receipt Date: 20110725
  Transmission Date: 20111222
  Serious: Yes (Death)
  Sender: FDA-Public Use
  Company Number: JP-ACCORD-010165

PATIENT
  Age: 70 Year
  Sex: Female

DRUGS (3)
  1. CISPLATIN [Suspect]
     Indication: GASTRIC CANCER
     Dosage: 20.00-MG-1.0 DAYS / INTRAVENOUS
     Route: 042
  2. PACLITAXEL [Suspect]
     Indication: GASTRIC CANCER
  3. ANTINEOPLASTIC AGENTS(ANTINEOPLASTIC AGENTS) [Suspect]
     Indication: GASTRIC CANCER
     Dosage: 80 MG - 1 DAY

REACTIONS (1)
  - DEATH [None]
